FAERS Safety Report 23809553 (Version 7)
Quarter: 2024Q3

REPORT INFORMATION
  Report Type: Spontaneous
  Country: US (occurrence: US)
  Receive Date: 20240502
  Receipt Date: 20240918
  Transmission Date: 20241016
  Serious: Yes (Other)
  Sender: BRISTOL MYERS SQUIBB
  Company Number: US-BRISTOL-MYERS SQUIBB COMPANY-2024-068687

PATIENT
  Age: 74 Year
  Sex: Male

DRUGS (1)
  1. REVLIMID [Suspect]
     Active Substance: LENALIDOMIDE
     Indication: Plasma cell myeloma
     Dosage: QD FOR 21 DAYS ON, 7 DAYS OFF
     Route: 048
     Dates: start: 20210708

REACTIONS (6)
  - Fatigue [Unknown]
  - Peripheral swelling [Unknown]
  - Limb discomfort [Unknown]
  - Somnolence [Unknown]
  - Chills [Unknown]
  - Arterial occlusive disease [Unknown]
